FAERS Safety Report 6427709-2 (Version None)
Quarter: 2009Q4

REPORT INFORMATION
  Report Type: 
  Country: None (occurrence: None)
  Receive Date: 20091105
  Receipt Date: 20091027
  Transmission Date: 20100525
  Serious: Yes (Hospitalization)
  Sender: FDA-Public Use
  Company Number: US-BIOGENIDEC-2007BI010544

PATIENT
  Age: 41 Year
  Sex: Female

DRUGS (8)
  1. AVONEX [Suspect]
     Indication: MULTIPLE SCLEROSIS
     Route: 030
     Dates: start: 19990101, end: 20030101
  2. AVONEX [Suspect]
     Route: 030
     Dates: start: 20030401, end: 20030801
  3. AVONEX [Suspect]
     Route: 030
     Dates: start: 20030801
  4. TYLENOL [Concomitant]
     Indication: DRUG USE FOR UNKNOWN INDICATION
  5. MULTI-VITAMINS [Concomitant]
     Indication: PROPHYLAXIS
  6. VITAMIN B-12 [Concomitant]
     Indication: PROPHYLAXIS
  7. ASCORBIC ACID [Concomitant]
     Indication: PROPHYLAXIS
  8. VITAMIN E [Concomitant]
     Indication: PROPHYLAXIS

REACTIONS (8)
  - CYSTITIS [None]
  - ENDOMETRIOSIS [None]
  - HYPOAESTHESIA [None]
  - INFLUENZA LIKE ILLNESS [None]
  - PARAESTHESIA [None]
  - PYREXIA [None]
  - STRESS [None]
  - UTERINE LEIOMYOMA [None]
